FAERS Safety Report 25251571 (Version 1)
Quarter: 2025Q2

REPORT INFORMATION
  Report Type: Spontaneous
  Country: AR (occurrence: AR)
  Receive Date: 20250429
  Receipt Date: 20250429
  Transmission Date: 20250717
  Serious: Yes (Other)
  Sender: MYLAN
  Company Number: AR-MYLANLABS-2025M1034829

PATIENT
  Age: 20 Year
  Sex: Male

DRUGS (10)
  1. CLOZAPINE [Suspect]
     Active Substance: CLOZAPINE
     Indication: Intellectual disability
     Dosage: 100 MILLIGRAM, QD (DAILY)
     Dates: start: 20250203
  2. CLOZAPINE [Suspect]
     Active Substance: CLOZAPINE
     Indication: Psychotic symptom
  3. CLOZAPINE [Suspect]
     Active Substance: CLOZAPINE
     Indication: Behaviour disorder
  4. CLOZAPINE [Suspect]
     Active Substance: CLOZAPINE
     Indication: Psychomotor hyperactivity
  5. CLOZAPINE [Suspect]
     Active Substance: CLOZAPINE
     Indication: Aggression
  6. OLANZAPINE [Concomitant]
     Active Substance: OLANZAPINE
     Dosage: 2.5 MILLIGRAM, QD (DAILY)
  7. VALPROATE [Concomitant]
     Active Substance: VALPROIC ACID
     Dosage: 1600 MILLIGRAM, QD (DAILY)
  8. DARIFENACIN [Concomitant]
     Active Substance: DARIFENACIN
  9. LEVOTHYROXINE [Concomitant]
     Active Substance: LEVOTHYROXINE
     Dosage: 100 MILLIGRAM, QD (DAILY)
  10. TERBINAFINE [Concomitant]
     Active Substance: TERBINAFINE
     Dosage: 250 MILLIGRAM, QD (DAILY) (PER DERMATOLOGICAL INDICATION)
     Dates: start: 20250412, end: 20250420

REACTIONS (2)
  - Neutropenia [Recovered/Resolved]
  - Off label use [Unknown]

NARRATIVE: CASE EVENT DATE: 20250203
